FAERS Safety Report 6785485-8 (Version None)
Quarter: 2010Q2

REPORT INFORMATION
  Report Type: 
  Country: None (occurrence: None)
  Receive Date: 20100623
  Receipt Date: 20100614
  Transmission Date: 20101027
  Serious: No
  Sender: FDA-Public Use
  Company Number: 2010BI004561

PATIENT
  Age: 38 Year
  Sex: Female

DRUGS (2)
  1. TYSABRI [Suspect]
     Indication: MULTIPLE SCLEROSIS
     Route: 042
     Dates: start: 20050110, end: 20050211
  2. TYSABRI [Suspect]
     Route: 042
     Dates: start: 20080924

REACTIONS (2)
  - INFLUENZA [None]
  - WHITE BLOOD CELL COUNT INCREASED [None]
